FAERS Safety Report 7715868-0 (Version None)
Quarter: 2011Q3

REPORT INFORMATION
  Report Type: 
  Country: None (occurrence: None)
  Receive Date: 20110829
  Receipt Date: 20110829
  Transmission Date: 20111222
  Serious: Yes (Hospitalization, Other)
  Sender: FDA-Public Use
  Company Number: None

PATIENT
  Age: 82 Year
  Sex: Female
  Weight: 57.152 kg

DRUGS (1)
  1. PROLIA [Suspect]
     Indication: OSTEOPOROSIS
     Dosage: 60 MG
     Dates: start: 20110608, end: 20110608

REACTIONS (6)
  - CELLULITIS [None]
  - CHILLS [None]
  - PNEUMONIA [None]
  - CYSTITIS [None]
  - CARDIAC FAILURE CONGESTIVE [None]
  - PYREXIA [None]
